FAERS Safety Report 10162186 (Version 1)
Quarter: 2014Q2

REPORT INFORMATION
  Report Type: Spontaneous
  Country: US (occurrence: None)
  Receive Date: 20140508
  Receipt Date: 20140508
  Transmission Date: 20141212
  Serious: Yes (Hospitalization)
  Sender: FDA-Public Use
  Company Number: None

PATIENT
  Age: 41 Year
  Sex: Male
  Weight: 68.04 kg

DRUGS (5)
  1. PROMETHAZINE/CODEINE [Suspect]
     Indication: NASOPHARYNGITIS
     Dosage: 1 TSP Q4-6H PRN ORAL
     Route: 048
     Dates: start: 20140507
  2. LISINOPRIL [Concomitant]
  3. PLAVIX [Concomitant]
  4. LASIX [Concomitant]
  5. NORCO [Concomitant]

REACTIONS (3)
  - Urticaria [None]
  - Dizziness [None]
  - Feeling hot [None]
